FAERS Safety Report 5218905-0 (Version None)
Quarter: 2007Q1

REPORT INFORMATION
  Report Type: 
  Country: None (occurrence: None)
  Receive Date: 20070125
  Receipt Date: 20070119
  Transmission Date: 20070707
  Serious: Yes (Hospitalization, Other)
  Sender: FDA-Public Use
  Company Number: GB-ABBOTT-06P-167-0348840-00

PATIENT
  Age: 38 Year
  Sex: Female

DRUGS (2)
  1. CLARITHROMYCIN [Suspect]
     Indication: RHINORRHOEA
  2. CLARITHROMYCIN [Suspect]

REACTIONS (9)
  - BLOOD PRESSURE INCREASED [None]
  - HEADACHE [None]
  - MOUTH ULCERATION [None]
  - NIGHT SWEATS [None]
  - PYREXIA [None]
  - RASH [None]
  - RENAL IMPAIRMENT [None]
  - TACHYCARDIA [None]
  - TUBULOINTERSTITIAL NEPHRITIS [None]
